FAERS Safety Report 6333138-2 (Version None)
Quarter: 2009Q3

REPORT INFORMATION
  Report Type: 
  Country: None (occurrence: None)
  Receive Date: 20090828
  Receipt Date: 20090821
  Transmission Date: 20100115
  Serious: Yes (Other)
  Sender: FDA-Public Use
  Company Number: JP-MERCK-0907USA05600

PATIENT
  Age: 65 Year
  Sex: Male

DRUGS (7)
  1. ZETIA [Suspect]
     Indication: DYSLIPIDAEMIA
     Route: 048
     Dates: start: 20090530, end: 20090725
  2. CANDESARTAN CILEXETIL [Concomitant]
     Route: 065
     Dates: start: 20020328
  3. GLIMEPIRIDE [Concomitant]
     Route: 065
     Dates: start: 20081206
  4. REBAMIPIDE [Concomitant]
     Route: 065
     Dates: start: 20020328
  5. NIFEDIPINE [Concomitant]
     Route: 065
     Dates: start: 20020328
  6. VASOTEC [Concomitant]
     Route: 048
     Dates: start: 20020328
  7. ASPIRIN [Concomitant]
     Route: 065
     Dates: start: 20020328, end: 20080725

REACTIONS (2)
  - PLATELET COUNT DECREASED [None]
  - PURPURA [None]
